FAERS Safety Report 5952980-0 (Version None)
Quarter: 2008Q4

REPORT INFORMATION
  Report Type: 
  Country: None (occurrence: None)
  Receive Date: 20081114
  Receipt Date: 20081103
  Transmission Date: 20090506
  Serious: Yes (Hospitalization)
  Sender: FDA-Public Use
  Company Number: US-AVENTIS-200817528US

PATIENT
  Sex: Female

DRUGS (9)
  1. KETEK [Suspect]
     Route: 048
     Dates: start: 20080326
  2. FEW ANTIBIOTICS [Suspect]
     Dosage: DOSE: UNK
  3. CLINDAMYCIN HCL [Suspect]
     Dosage: DOSE: UNK
  4. PRILOSEC [Concomitant]
     Dosage: DOSE: UNK
  5. CLARITIN [Concomitant]
     Dosage: DOSE: UNK
  6. IBUPROFEN TABLETS [Concomitant]
     Dosage: DOSE: UNK
  7. BENADRYL [Concomitant]
     Dosage: DOSE: UNK
  8. PERCOCET [Concomitant]
     Dosage: DOSE: UNK
  9. IMMUNOTHERAPY SHOTS [Concomitant]
     Dosage: DOSE: UNK

REACTIONS (23)
  - ABDOMINAL PAIN UPPER [None]
  - ALANINE AMINOTRANSFERASE INCREASED [None]
  - ALPHA 1 FOETOPROTEIN INCREASED [None]
  - AMNESIA [None]
  - ASPARTATE AMINOTRANSFERASE INCREASED [None]
  - BLOOD ALKALINE PHOSPHATASE INCREASED [None]
  - BLOOD LACTATE DEHYDROGENASE INCREASED [None]
  - CHILLS [None]
  - ESCHERICHIA URINARY TRACT INFECTION [None]
  - FATIGUE [None]
  - HAEMANGIOMA OF LIVER [None]
  - HEPATIC FAILURE [None]
  - HEPATITIS [None]
  - HEPATOMEGALY [None]
  - HEPATOTOXICITY [None]
  - HYPERHIDROSIS [None]
  - HYPOTENSION [None]
  - LIVER TRANSPLANT [None]
  - NAUSEA [None]
  - PAIN [None]
  - PANCYTOPENIA [None]
  - PYREXIA [None]
  - VOMITING [None]
